FAERS Safety Report 6259389-3 (Version None)
Quarter: 2009Q3

REPORT INFORMATION
  Report Type: 
  Country: None (occurrence: None)
  Receive Date: 20090706
  Receipt Date: 20090626
  Transmission Date: 20100115
  Serious: Yes (Other)
  Sender: FDA-Public Use
  Company Number: 1-18998832

PATIENT
  Age: 70 Year
  Sex: Female

DRUGS (3)
  1. WARFARIN SODIUM [Suspect]
     Indication: ATRIAL FIBRILLATION
     Dosage: WEEKLY DOSE OF 7.5MG + 5MG, ORAL
     Route: 048
  2. XELODA [Suspect]
     Indication: ADENOCARCINOMA PANCREAS
     Dosage: INTRAVENOUS
     Route: 042
     Dates: start: 20060101, end: 20060101
  3. GEMCITABINE [Suspect]
     Indication: ADENOCARCINOMA PANCREAS
     Dosage: INTRAVENOUS
     Route: 042
     Dates: start: 20060101, end: 20080201

REACTIONS (9)
  - ADENOCARCINOMA PANCREAS [None]
  - ASCITES [None]
  - CHOLELITHIASIS [None]
  - DRUG INTERACTION [None]
  - FATIGUE [None]
  - HAEMATOCRIT DECREASED [None]
  - INTERNATIONAL NORMALISED RATIO INCREASED [None]
  - METASTATIC NEOPLASM [None]
  - OEDEMA [None]
